FAERS Safety Report 9281139 (Version 2)
Quarter: 2013Q2

REPORT INFORMATION
  Report Type: Spontaneous
  Country: CH (occurrence: CH)
  Receive Date: 20130509
  Receipt Date: 20130531
  Transmission Date: 20140414
  Serious: No
  Sender: FDA-Public Use
  Company Number: PHHY2013CH044850

PATIENT
  Age: 67 Year
  Sex: Female
  Weight: 58 kg

DRUGS (7)
  1. AFINITOR [Suspect]
     Indication: BREAST CANCER METASTATIC
     Dosage: 10 MG/DAY
     Dates: start: 20120903, end: 20121109
  2. AFINITOR [Suspect]
     Dosage: 5 MG/DAY
     Dates: start: 20121110, end: 20121119
  3. AFINITOR [Suspect]
     Dosage: 5 MG/DAY
     Dates: start: 20130108, end: 20130403
  4. TAMOXIFEN [Concomitant]
     Dosage: 20 MG, QD
  5. SINTROM [Concomitant]
  6. VENLAFAXIN [Concomitant]
     Dosage: 37.5 MG, QD
  7. CARDIODORON [Concomitant]
     Dosage: 20 DRP, TID

REACTIONS (7)
  - Depression [Recovered/Resolved]
  - Paraesthesia [Recovered/Resolved]
  - Diabetes mellitus [Recovered/Resolved]
  - Fatigue [Unknown]
  - Weight decreased [Unknown]
  - Asthenia [Recovered/Resolved]
  - Hypertension [Recovered/Resolved]
